FAERS Safety Report 13392581 (Version 2)
Quarter: 2017Q2

REPORT INFORMATION
  Report Type: Spontaneous
  Country: IL (occurrence: IL)
  Receive Date: 20170331
  Receipt Date: 20170406
  Transmission Date: 20170830
  Serious: Yes (Death, Other)
  Sender: FDA-Public Use
  Company Number: IL-BAXTER-2017BAX013248

PATIENT
  Age: 67 Year
  Sex: Female
  Weight: 80 kg

DRUGS (33)
  1. NACL 0.9% USP [Suspect]
     Active Substance: SODIUM CHLORIDE
     Dosage: COMPOUNDED WITH TAXOL; CYCLE 2, DAY 1
     Route: 065
  2. NACL 0.9% USP [Suspect]
     Active Substance: SODIUM CHLORIDE
     Dosage: COMPOUNDED WITH PALOXI; 1 DAY
     Route: 042
  3. PALOXI [Suspect]
     Active Substance: PALONOSETRON HYDROCHLORIDE
     Indication: PRODUCT USED FOR UNKNOWN INDICATION
     Dosage: FORM STRENGTH: 0.25 M (FURTHER NOT SPECIFIED), 150 ML SALINE (BAXTER), 1 DAY
     Route: 042
  4. CARBOPLATIN. [Suspect]
     Active Substance: CARBOPLATIN
     Dosage: COMPOUNDED WITH DEXTROSE 5 %, AT 75 % AUC-5; 1ST PREPARATION
     Route: 065
     Dates: start: 20170228
  5. NACL 0.9% USP [Suspect]
     Active Substance: SODIUM CHLORIDE
     Dosage: COMPOUNDED WITH ZANTAC
     Route: 042
  6. TAXOL [Suspect]
     Active Substance: PACLITAXEL
     Dosage: DOSAGE: 175 MG/M2, DAY-1, PERCENT: 75; COMPOUNDED WITH SALINE (BAXTER), AT 75 % AUC-5; 2ND PREPARATI
     Route: 065
     Dates: start: 20170321, end: 20170321
  7. ZANTAC [Suspect]
     Active Substance: RANITIDINE HYDROCHLORIDE
     Indication: PRODUCT USED FOR UNKNOWN INDICATION
     Dosage: COMPOUNDED WITH 150 ML SALINE (BAXTER)
     Route: 042
  8. CARBOPLATIN. [Suspect]
     Active Substance: CARBOPLATIN
     Dosage: FORM STRENGTH:450MG/45ML; COMPOUNDED WITH GLUCOSE 5 %
     Route: 065
     Dates: start: 20170321, end: 20170321
  9. DEXTROSE. [Suspect]
     Active Substance: DEXTROSE
     Dosage: COMPOUNDED WITH CARBOPLATIN, AT 75 % AUC-5; 2ND PREPARATION
     Route: 065
     Dates: start: 20170321
  10. TAXOL [Suspect]
     Active Substance: PACLITAXEL
     Dosage: COMPOUNDED WITH SALINE (BAXTER), AT 75 % AUC-5; 1ST PREPARATION
     Route: 065
     Dates: start: 20170228
  11. CARBOPLATIN. [Suspect]
     Active Substance: CARBOPLATIN
     Indication: OVARIAN CANCER
     Dosage: CARBOPLATIN AND TAXOL THERAPY AT 100 % AUC-6; 1 TO 7 PREPARATIONS
     Route: 065
  12. CARBOPLATIN. [Suspect]
     Active Substance: CARBOPLATIN
     Dosage: AUC, PERCENT-5, COMPOUNDED WITH DEXTROSE 5 %, CYCLE 2, DAY 1
     Route: 065
  13. NACL 0.9% USP [Suspect]
     Active Substance: SODIUM CHLORIDE
     Indication: MEDICATION DILUTION
     Dosage: COMPOUNDED WITH TAXOL, CYCLE 1
     Route: 065
  14. TAXOL [Suspect]
     Active Substance: PACLITAXEL
     Dosage: CARBOPLATIN AND TAXOL THERAPY AT 100 % AUC-6; 8TH PREPARATION
     Route: 065
     Dates: start: 20160523
  15. TAXOL [Suspect]
     Active Substance: PACLITAXEL
     Dosage: COMPOUNDED WITH SALINE (BAXTER), CYCLE 1
     Route: 065
  16. TAXOL [Suspect]
     Active Substance: PACLITAXEL
     Dosage: DOSAGE: 175 MG/M2, DAY-1, PERCENT: 75; COMPOUNDED WITH SALINE (BAXTER), CYCLE 2, DAY 1
     Route: 065
  17. CARBOPLATIN. [Suspect]
     Active Substance: CARBOPLATIN
     Dosage: CARBOPLATIN AND TAXOL THERAPY AT 100 % AUC-6; 8TH PREPARATION
     Route: 065
     Dates: start: 20160523
  18. DEXACORT [Concomitant]
     Active Substance: DEXAMETHASONE SODIUM PHOSPHATE
     Indication: PRODUCT USED FOR UNKNOWN INDICATION
     Route: 042
  19. EBETAXEL [Suspect]
     Active Substance: PACLITAXEL
     Indication: OVARIAN CANCER
     Dosage: FORM STRENGTH: 30MG/5M; COMPOUNDED WITH 0.9 % NACL (TEVA MEDICAL)
     Route: 065
     Dates: end: 20170321
  20. NACL [Suspect]
     Active Substance: SODIUM CHLORIDE
     Indication: MEDICATION DILUTION
     Dosage: NACL IV.500 ML NON-PVC, COMPOUNDED WITH EBETAXEL
     Route: 065
     Dates: end: 20170321
  21. DEXTROSE. [Suspect]
     Active Substance: DEXTROSE
     Dosage: COMPOUNDED WITH CARBOPLATIN, AT 75 % AUC-5; 1ST PREPARATION
     Route: 065
     Dates: start: 20170228
  22. CARBOPLATIN. [Suspect]
     Active Substance: CARBOPLATIN
     Dosage: COMPOUNDED WITH DEXTROSE 5%, CYCLE 1
     Route: 065
  23. CARBOPLATIN. [Suspect]
     Active Substance: CARBOPLATIN
     Dosage: AUC-5, PERCENT-75, COMPOUNDED WITH DEXTROSE 5 %, AT 75 % AUC-5; 2ND PREPARATION
     Route: 065
     Dates: start: 20170321
  24. TAXOL [Suspect]
     Active Substance: PACLITAXEL
     Indication: OVARIAN CANCER
     Dosage: CARBOPLATIN AND TAXOL THERAPY AT 100 % AUC-6; 1 TO 7 PREPARATIONS
     Route: 065
  25. AVASTIN [Suspect]
     Active Substance: BEVACIZUMAB
     Indication: PRODUCT USED FOR UNKNOWN INDICATION
     Route: 065
  26. AHISTON [Suspect]
     Active Substance: CHLORPHENIRAMINE MALEATE
     Indication: PROPHYLACTIC CHEMOTHERAPY
     Dosage: 2 TAB; 1 DAY TO 1.5 HOUR
     Route: 065
     Dates: start: 20170321, end: 20170321
  27. PRAMIN [Concomitant]
     Indication: PRODUCT USED FOR UNKNOWN INDICATION
     Dosage: DOSAGE: 10 MGX 4
     Route: 065
  28. CARBOPLATIN. [Suspect]
     Active Substance: CARBOPLATIN
     Indication: OVARIAN CANCER
     Dosage: FORM STRENGTH:150MG/15ML, COMPOUNDED WITH GLUCOSE 5 %
     Route: 065
     Dates: start: 20170228
  29. GLUCOSE 5% IV INFUSION BP VIAFLO [Suspect]
     Active Substance: DEXTROSE
     Indication: MEDICATION DILUTION
     Dosage: COMPOUNDED WITH CARBOPLATIN 150MG/15ML AND 450MG/45ML
     Route: 065
     Dates: end: 20170321
  30. NACL 0.9% USP [Suspect]
     Active Substance: SODIUM CHLORIDE
     Dosage: COMPOUNDED WITH TAXOL, AT 75 % AUC-5; 1ST PREPARATION
     Route: 065
     Dates: start: 20170228
  31. NACL 0.9% USP [Suspect]
     Active Substance: SODIUM CHLORIDE
     Dosage: COMPOUNDED WITH TAXOL; AT 75 % AUC-5; 2ND PREPARATION
     Route: 065
     Dates: start: 20170321
  32. DEXTROSE. [Suspect]
     Active Substance: DEXTROSE
     Indication: MEDICATION DILUTION
     Dosage: COMPOUNDED WITH CARBOPLATIN, CYCLE 1
     Route: 065
  33. DEXTROSE. [Suspect]
     Active Substance: DEXTROSE
     Dosage: COMPOUNDED WITH CARBOPLATIN, CYCLE 2 DAY 1
     Route: 065

REACTIONS (2)
  - Cardiac arrest [Fatal]
  - Fall [Recovered/Resolved]

NARRATIVE: CASE EVENT DATE: 20170201
